FAERS Safety Report 18439952 (Version 1)
Quarter: 2020Q4

REPORT INFORMATION
  Report Type: Spontaneous
  Country: US (occurrence: US)
  Receive Date: 20201028
  Receipt Date: 20201028
  Transmission Date: 20210114
  Serious: No
  Sender: FDA-Public Use
  Company Number: None

PATIENT
  Age: 71 Year
  Sex: Female
  Weight: 49.05 kg

DRUGS (22)
  1. CLEAR EYES [Concomitant]
     Active Substance: NAPHAZOLINE HYDROCHLORIDE
  2. MULTIVITAMIN [Concomitant]
     Active Substance: VITAMINS
  3. CLARITIN [Concomitant]
     Active Substance: LORATADINE
  4. KETOCONAZOLE. [Concomitant]
     Active Substance: KETOCONAZOLE
  5. PERIDEX [Concomitant]
     Active Substance: CHLORHEXIDINE GLUCONATE
  6. PSEUDOEPHEDRINE. [Concomitant]
     Active Substance: PSEUDOEPHEDRINE HYDROCHLORIDE
  7. CHOLECALCIFEROL [Concomitant]
     Active Substance: CHOLECALCIFEROL
  8. ALCLOMETASONE [Concomitant]
     Active Substance: ALCLOMETASONE
  9. FAMOTIDINE. [Concomitant]
     Active Substance: FAMOTIDINE
  10. LODINE [Concomitant]
     Active Substance: ETODOLAC
  11. METRONIDAZOLE. [Concomitant]
     Active Substance: METRONIDAZOLE
  12. KISQALI FEMARA CO-PACK [Suspect]
     Active Substance: LETROZOLE\RIBOCICLIB
     Indication: BREAST CANCER
     Dosage: ?          OTHER FREQUENCY:DAILY FOR 21/28 D;?
     Route: 048
     Dates: start: 20171128
  13. BIOTIN 5000 [Concomitant]
  14. CALTRATE 600+ D [Concomitant]
  15. RANITIDINE. [Concomitant]
     Active Substance: RANITIDINE
  16. BACTRIM DS [Concomitant]
     Active Substance: SULFAMETHOXAZOLE\TRIMETHOPRIM
  17. OMEPRAZOLE. [Concomitant]
     Active Substance: OMEPRAZOLE
  18. PRAMCORT [Concomitant]
     Active Substance: HYDROCORTISONE ACETATE\PRAMOXINE HYDROCHLORIDE
  19. ADVIL [Concomitant]
     Active Substance: IBUPROFEN
  20. CLINDAMYCIN. [Concomitant]
     Active Substance: CLINDAMYCIN
  21. PREVIDENT [Concomitant]
     Active Substance: SODIUM FLUORIDE
  22. TYLENOL [Concomitant]
     Active Substance: ACETAMINOPHEN

REACTIONS (2)
  - Fatigue [None]
  - Somnolence [None]

NARRATIVE: CASE EVENT DATE: 20201028
